FAERS Safety Report 10249935 (Version 1)
Quarter: 2014Q2

REPORT INFORMATION
  Report Type: Spontaneous
  Country: ES (occurrence: SE)
  Receive Date: 20140620
  Receipt Date: 20140620
  Transmission Date: 20141212
  Serious: Yes (Other)
  Sender: FDA-Public Use
  Company Number: SE-FRI-1000068301

PATIENT
  Age: 56 Year
  Sex: Male

DRUGS (2)
  1. ACLIDINIUM [Suspect]
     Indication: CHRONIC OBSTRUCTIVE PULMONARY DISEASE
     Route: 055
     Dates: start: 20140308, end: 20140410
  2. SELOKEN ZOC [Concomitant]

REACTIONS (1)
  - Chest pain [Recovered/Resolved]
